FAERS Safety Report 4408405-X (Version None)
Quarter: 2004Q3

REPORT INFORMATION
  Report Type: 
  Country: None (occurrence: None)
  Receive Date: 20040723
  Receipt Date: 20040715
  Transmission Date: 20050211
  Serious: Yes (Life-Threatening, Other)
  Sender: FDA-Public Use
  Company Number: 002#2#2004-00144 (1)

PATIENT
  Age: 59 Year
  Sex: Male

DRUGS (3)
  1. OMEPRAZOLE [Suspect]
     Indication: GASTROOESOPHAGEAL REFLUX DISEASE
     Dosage: 20 MG, 2 IN 1 D, ORAL
     Route: 048
     Dates: start: 20040101, end: 20040601
  2. UNSPECIFIED DIABETES DRUG [Concomitant]
  3. MANY OTHER UNSPECIFIED DRUGS [Concomitant]

REACTIONS (7)
  - CONDITION AGGRAVATED [None]
  - DISEASE RECURRENCE [None]
  - DRUG INEFFECTIVE [None]
  - GASTROOESOPHAGEAL REFLUX DISEASE [None]
  - PHARMACEUTICAL PRODUCT COMPLAINT [None]
  - RENAL DISORDER [None]
  - RENAL FAILURE [None]
